FAERS Safety Report 5062919-0 (Version None)
Quarter: 2006Q3

REPORT INFORMATION
  Report Type: 
  Country: None (occurrence: None)
  Receive Date: 20060724
  Receipt Date: 20041021
  Transmission Date: 20061208
  Serious: Yes (Hospitalization, Disabling)
  Sender: FDA-Public Use
  Company Number: 2006088661

PATIENT
  Age: 33 Year
  Sex: Female

DRUGS (1)
  1. DELTACORTRIL [Suspect]
     Indication: VASCULITIS
     Dosage: ORAL
     Route: 048
     Dates: start: 19970601, end: 19990101

REACTIONS (4)
  - CARTILAGE INJURY [None]
  - DEPRESSION [None]
  - OSTEONECROSIS [None]
  - PAIN [None]
